FAERS Safety Report 6474288-X (Version None)
Quarter: 2009Q4

REPORT INFORMATION
  Report Type: 
  Country: None (occurrence: None)
  Receive Date: 20091204
  Receipt Date: 20091201
  Transmission Date: 20100525
  Serious: Yes (Death, Hospitalization)
  Sender: FDA-Public Use
  Company Number: PHHY2009MX39000

PATIENT
  Sex: Male

DRUGS (1)
  1. TEGRETOL [Suspect]
     Indication: EPILEPSY
     Dosage: THREE TABLET PER DAY
     Route: 048
     Dates: start: 20010101, end: 20090728

REACTIONS (2)
  - INFLUENZA [None]
  - PNEUMONIA PRIMARY ATYPICAL [None]
